FAERS Safety Report 6972962-X (Version None)
Quarter: 2010Q3

REPORT INFORMATION
  Report Type: 
  Country: None (occurrence: None)
  Receive Date: 20100909
  Receipt Date: 20100608
  Transmission Date: 20110219
  Serious: Yes (Other)
  Sender: FDA-Public Use
  Company Number: US-KINGPHARMUSA00001-K201000718

PATIENT
  Age: 55 Year
  Sex: Male

DRUGS (1)
  1. EMBEDA [Suspect]
     Dosage: 50 MG, QD

REACTIONS (1)
  - ANAPHYLACTIC REACTION [None]
